FAERS Safety Report 8959334 (Version 3)
Quarter: 2013Q1

REPORT INFORMATION
  Report Type: Spontaneous
  Country: US (occurrence: None)
  Receive Date: 20121128
  Receipt Date: 20130108
  Transmission Date: 20140127
  Serious: Yes (Hospitalization)
  Sender: FDA-Public Use
  Company Number: DKLU1086548

PATIENT
  Age: 3 Year
  Sex: Male
  Weight: 20.3 kg

DRUGS (11)
  1. SABRIL [Suspect]
     Indication: SIMPLE PARTIAL SEIZURES
     Dosage: 500 MG, AM
     Dates: start: 2009
  2. SABRIL [Suspect]
     Indication: EPILEPSY
     Dosage: 500 MG, AM
     Dates: start: 2009
  3. LAMICTAL [Concomitant]
  4. ARTANE [Concomitant]
  5. BACLOFEN [Concomitant]
  6. INDERAL [Concomitant]
  7. VALIUM [Concomitant]
  8. CLONIDINE [Concomitant]
  9. PEPCID [Concomitant]
  10. PROBIOTIC [Concomitant]
  11. MYLANTA [Concomitant]

REACTIONS (7)
  - Device related infection [None]
  - Cardiac infection [None]
  - Sepsis [None]
  - Lip dry [None]
  - Dyspnoea [None]
  - Lyme disease [None]
  - Endocarditis bacterial [None]
